FAERS Safety Report 6179138-7 (Version None)
Quarter: 2009Q2

REPORT INFORMATION
  Report Type: 
  Country: None (occurrence: None)
  Receive Date: 20090505
  Receipt Date: 20090504
  Transmission Date: 20091009
  Serious: Yes (Hospitalization)
  Sender: FDA-Public Use
  Company Number: FR-WYE-G03613809

PATIENT
  Sex: Male

DRUGS (2)
  1. ADVIL [Suspect]
     Indication: PYREXIA
     Route: 048
     Dates: start: 20090418, end: 20090419
  2. DOLIPRANE [Concomitant]
     Indication: PYREXIA
     Route: 048
     Dates: start: 20090418

REACTIONS (8)
  - CONDITION AGGRAVATED [None]
  - CRYING [None]
  - EYE SWELLING [None]
  - HENOCH-SCHONLEIN PURPURA [None]
  - HYPERSENSITIVITY [None]
  - SUPERINFECTION BACTERIAL [None]
  - URTICARIA [None]
  - VARICELLA [None]
